FAERS Safety Report 23812489 (Version 2)
Quarter: 2024Q2

REPORT INFORMATION
  Report Type: Spontaneous
  Country: US (occurrence: US)
  Receive Date: 20240503
  Receipt Date: 20240507
  Transmission Date: 20240716
  Serious: Yes (Hospitalization)
  Sender: FDA-Public Use
  Company Number: US-AMGEN-USASP2024086429

PATIENT
  Sex: Male

DRUGS (1)
  1. EVENITY [Suspect]
     Active Substance: ROMOSOZUMAB-AQQG
     Indication: Osteoporosis
     Dosage: 210 MILLIGRAM (210MG/2.34ML Q1M)
     Route: 065

REACTIONS (4)
  - Dizziness [Unknown]
  - Tooth discolouration [Unknown]
  - Pain [Not Recovered/Not Resolved]
  - Dyspnoea [Unknown]
